FAERS Safety Report 15604385 (Version 1)
Quarter: 2018Q4

REPORT INFORMATION
  Report Type: Other
  Country: CN (occurrence: CN)
  Receive Date: 20181110
  Receipt Date: 20181110
  Transmission Date: 20190205
  Serious: Yes (Hospitalization, Other)
  Sender: FDA-Public Use
  Company Number: CN-ALLIED PHARMA, LLC-2058692

PATIENT
  Age: 71 Year
  Sex: Female

DRUGS (9)
  1. VANCOMYCIN HYDROCHLORIDE. [Suspect]
     Active Substance: VANCOMYCIN HYDROCHLORIDE
     Route: 065
  2. FAMOTIDINE. [Concomitant]
     Active Substance: FAMOTIDINE
     Route: 065
  3. CLARITHROMYCIN. [Suspect]
     Active Substance: CLARITHROMYCIN
     Indication: MORAXELLA INFECTION
     Route: 048
  4. ISOSORBIDE DINITRATE. [Concomitant]
     Active Substance: ISOSORBIDE DINITRATE
     Route: 065
  5. VALSARTAN. [Concomitant]
     Active Substance: VALSARTAN
     Route: 065
  6. ASPIRIN. [Concomitant]
     Active Substance: ASPIRIN
     Route: 065
  7. BISOPROLOL FUMARATE. [Concomitant]
     Active Substance: BISOPROLOL FUMARATE
     Route: 065
  8. ALFACALCIDOL [Concomitant]
     Active Substance: ALFACALCIDOL
     Route: 065
  9. NYSTATIN. [Concomitant]
     Active Substance: NYSTATIN
     Route: 065

REACTIONS (6)
  - Head injury [Recovered/Resolved]
  - Skin laceration [Recovered/Resolved]
  - Neurotoxicity [Recovered/Resolved]
  - Gait disturbance [Recovered/Resolved]
  - Fall [Recovered/Resolved]
  - Hallucination, visual [Recovered/Resolved]
